FAERS Safety Report 4728290-6 (Version None)
Quarter: 2005Q3

REPORT INFORMATION
  Report Type: 
  Country: None (occurrence: None)
  Receive Date: 20050727
  Receipt Date: 20050715
  Transmission Date: 20060218
  Serious: Yes (Life-Threatening, Hospitalization, Other)
  Sender: FDA-Public Use
  Company Number: HQWYE337009JUN05

PATIENT
  Age: 48 Year
  Sex: Female
  Weight: 69 kg

DRUGS (6)
  1. MYLOTARG [Suspect]
     Indication: ACUTE MYELOID LEUKAEMIA
     Dosage: 9 MG 1X PER 1 DAY; INTRAVENOUS
     Route: 042
     Dates: start: 20050425, end: 20050425
  2. MYLOTARG [Suspect]
     Dates: start: 20050512, end: 20050512
  3. MYLOTARG [Suspect]
     Dosage: 10 MG 1X PER 1 DAY; INTRAVENOUS
     Route: 042
     Dates: start: 20050530, end: 20050530
  4. HYDRA (HYDROXYCARBAMIDE) [Concomitant]
  5. HYDRA (HYDROCYCARBAMIDE) [Concomitant]
  6. CYTARABINE [Concomitant]

REACTIONS (5)
  - DISEASE PROGRESSION [None]
  - PLATELET COUNT DECREASED [None]
  - PYREXIA [None]
  - REFUSAL OF TREATMENT BY PATIENT [None]
  - WHITE BLOOD CELL COUNT ABNORMAL [None]
